FAERS Safety Report 7767867 (Version 5)
Quarter: 2014Q1

REPORT INFORMATION
  Report Type: Spontaneous
  Country: US (occurrence: US)
  Receive Date: 20110120
  Receipt Date: 20140320
  Transmission Date: 20141002
  Serious: No
  Sender: FDA-Public Use
  Company Number: US-B.I. PHARMACEUTICALS,INC./RIDGEFIELD-2011-BP-01119BP

PATIENT
  Age: 74 Year
  Sex: Female
  Weight: 68.04 kg

DRUGS (27)
  1. PRADAXA [Suspect]
     Indication: ATRIAL FIBRILLATION
     Dosage: 300 MG
     Route: 048
     Dates: start: 2010
  2. PRADAXA [Suspect]
     Indication: CEREBROVASCULAR ACCIDENT PROPHYLAXIS
  3. NIASPAN [Concomitant]
     Indication: HYPERLIPIDAEMIA
     Dosage: 1500 MG
     Route: 048
  4. HCTZ [Concomitant]
     Indication: HYPERTENSION
     Dosage: 25 MG
     Route: 048
  5. HCTZ [Concomitant]
     Indication: SWELLING
  6. SYNTHROID [Concomitant]
     Indication: THYROID DISORDER
     Dosage: 25 MCG
     Route: 048
     Dates: start: 2008
  7. SYNTHROID [Concomitant]
     Indication: HYPOTHYROIDISM
  8. TENORMIN [Concomitant]
     Indication: HYPERTENSION
     Dosage: 25 MG
     Route: 048
     Dates: start: 1998
  9. FISH OIL [Concomitant]
     Indication: PROPHYLAXIS
     Route: 065
  10. MULTI VITAMIN [Concomitant]
     Indication: PROPHYLAXIS
     Route: 048
  11. GARLIC [Concomitant]
     Indication: PROPHYLAXIS
     Route: 048
  12. GARLIC [Concomitant]
     Indication: ROUTINE HEALTH MAINTENANCE
  13. FLAX SEED [Concomitant]
     Indication: PROPHYLAXIS
     Route: 065
  14. PREMERE OCULAR NUTRITION [Concomitant]
     Indication: MACULAR DEGENERATION
     Route: 048
     Dates: start: 2009
  15. ATENOLOL [Concomitant]
     Indication: HYPERTENSION
     Dosage: 100 MG
     Route: 048
  16. ATENOLOL [Concomitant]
     Dosage: 25 MG
     Route: 048
  17. DIOVAN [Concomitant]
     Indication: HYPERTENSION
     Dosage: 320 MG
     Route: 048
     Dates: start: 201208
  18. DIOVAN [Concomitant]
     Indication: HEART VALVE STENOSIS
     Dosage: 160 MG
     Route: 048
     Dates: end: 201208
  19. BABY ASPIRIN [Concomitant]
     Indication: BLOOD DISORDER
     Dosage: 81 MG
     Route: 048
  20. SUPER DHA GEMS [Concomitant]
     Indication: CARDIAC DISORDER
     Route: 048
  21. SUPER DHA GEMS [Concomitant]
     Indication: ANGIOPATHY
  22. HYALURONIC ACID [Concomitant]
     Indication: ARTHROPATHY
     Route: 048
     Dates: start: 20120910
  23. VITAMIN B12 [Concomitant]
     Route: 048
     Dates: start: 2012, end: 2012
  24. CRANBERRY [Concomitant]
     Indication: BLADDER DISORDER
     Dosage: 500 MG
     Route: 048
  25. LIPOFLAVONOIDS [Concomitant]
     Indication: TINNITUS
     Route: 048
     Dates: end: 2012
  26. ULTIMATE OMEGA [Concomitant]
     Dosage: 4 NG
     Route: 048
  27. ASPIRIN [Concomitant]
     Dosage: 81 MG
     Route: 048

REACTIONS (22)
  - Dyspepsia [Not Recovered/Not Resolved]
  - Haematuria [Recovered/Resolved]
  - Nausea [Recovered/Resolved]
  - Periorbital contusion [Recovered/Resolved]
  - Aspartate aminotransferase increased [Not Recovered/Not Resolved]
  - Dizziness [Recovered/Resolved]
  - Faecal volume increased [Not Recovered/Not Resolved]
  - Headache [Recovered/Resolved]
  - Pain in extremity [Not Recovered/Not Resolved]
  - Dyspnoea [Not Recovered/Not Resolved]
  - Hypertension [Recovered/Resolved]
  - Fall [Recovered/Resolved]
  - Lip injury [Recovered/Resolved]
  - Face injury [Recovered/Resolved]
  - Fall [Recovered/Resolved]
  - Laceration [Recovered/Resolved]
  - Psychomotor hyperactivity [Recovered/Resolved]
  - Scratch [Recovered/Resolved]
  - Syncope [Recovered/Resolved]
  - Aortic stenosis [Not Recovered/Not Resolved]
  - Insomnia [Recovered/Resolved]
  - Temporal arteritis [Not Recovered/Not Resolved]
